FAERS Safety Report 12093535 (Version 4)
Quarter: 2016Q2

REPORT INFORMATION
  Report Type: Spontaneous
  Country: AU (occurrence: AU)
  Receive Date: 20160219
  Receipt Date: 20160531
  Transmission Date: 20160815
  Serious: Yes (Hospitalization, Other)
  Sender: FDA-Public Use
  Company Number: AU-009507513-1602AUS008022

PATIENT
  Age: 78 Year
  Sex: Male

DRUGS (1)
  1. PEMBROLIZUMAB. [Suspect]
     Active Substance: PEMBROLIZUMAB
     Indication: METASTATIC MALIGNANT MELANOMA
     Dosage: UNK, FIFTH CYCLE

REACTIONS (4)
  - Delirium [Recovered/Resolved]
  - Dementia [Unknown]
  - Blood cortisol decreased [Unknown]
  - Joint injection [Unknown]
